FAERS Safety Report 6336884-X (Version None)
Quarter: 2009Q3

REPORT INFORMATION
  Report Type: 
  Country: None (occurrence: None)
  Receive Date: 20090901
  Receipt Date: 20090820
  Transmission Date: 20100115
  Serious: Yes (Other)
  Sender: FDA-Public Use
  Company Number: PHHY2009NO35079

PATIENT

DRUGS (3)
  1. LEPONEX [Suspect]
     Indication: PSYCHOTIC DISORDER
     Dosage: UNK
  2. LEPONEX [Suspect]
     Dosage: 75 MG, UNK
  3. ZYPREXA [Concomitant]
     Indication: PSYCHOTIC DISORDER

REACTIONS (5)
  - HALLUCINATION, AUDITORY [None]
  - HEPATIC ENZYME INCREASED [None]
  - NEUROLEPTIC MALIGNANT SYNDROME [None]
  - OBSESSIVE-COMPULSIVE DISORDER [None]
  - PYREXIA [None]
